FAERS Safety Report 6493701-5 (Version None)
Quarter: 2009Q4

REPORT INFORMATION
  Report Type: 
  Country: None (occurrence: None)
  Receive Date: 20091214
  Receipt Date: 20091207
  Transmission Date: 20100525
  Serious: Yes (Other)
  Sender: FDA-Public Use
  Company Number: D0065262A

PATIENT
  Sex: Female

DRUGS (2)
  1. ZOFRAN [Suspect]
     Route: 065
  2. ETHYOL [Suspect]
     Route: 065

REACTIONS (3)
  - CIRCULATORY COLLAPSE [None]
  - DRUG INTERACTION [None]
  - NAUSEA [None]
